FAERS Safety Report 4829079-X (Version None)
Quarter: 2005Q4

REPORT INFORMATION
  Report Type: 
  Country: None (occurrence: None)
  Receive Date: 20051031
  Receipt Date: 20050225
  Transmission Date: 20060501
  Serious: Yes (Hospitalization)
  Sender: FDA-Public Use
  Company Number: 200419369US

PATIENT
  Age: 31 Year
  Sex: Female

DRUGS (6)
  1. ARAVA [Suspect]
     Indication: SYSTEMIC LUPUS ERYTHEMATOSUS
     Dosage: 10 MG QD PO
     Route: 048
  2. PROZAC [Concomitant]
  3. LEVOTHYROXINE SODIUM [Concomitant]
  4. NIFEDIPINE (PROCARDIA) [Concomitant]
  5. METHADONE HCL [Concomitant]
  6. QUETIAPINE FUMARATE (SEROQUEL) [Concomitant]

REACTIONS (3)
  - ABDOMINAL DISTENSION [None]
  - ALVEOLITIS [None]
  - DYSPNOEA [None]
